FAERS Safety Report 4441128-X (Version None)
Quarter: 2004Q3

REPORT INFORMATION
  Report Type: 
  Country: None (occurrence: None)
  Receive Date: 20040902
  Receipt Date: 20040902
  Transmission Date: 20050211
  Serious: Yes (Death)
  Sender: FDA-Public Use
  Company Number: None

PATIENT
  Age: 68 Year
  Sex: Female

DRUGS (6)
  1. ARAVA [Suspect]
     Indication: RHEUMATOID ARTHRITIS
     Dosage: 20 MG QD PO
     Route: 048
     Dates: start: 20020801, end: 20040801
  2. LOTREL [Concomitant]
  3. KLOR-CON [Concomitant]
  4. LASIX [Concomitant]
  5. CELEBREX [Concomitant]
  6. PREDNISONE [Concomitant]

REACTIONS (12)
  - ABNORMAL BEHAVIOUR [None]
  - BLOOD GLUCOSE DECREASED [None]
  - BODY TEMPERATURE DECREASED [None]
  - COMA [None]
  - DISSEMINATED INTRAVASCULAR COAGULATION [None]
  - HEAD INJURY [None]
  - HEPATIC FAILURE [None]
  - INTERNATIONAL NORMALISED RATIO INCREASED [None]
  - LIVER FUNCTION TEST ABNORMAL [None]
  - RESPIRATORY FAILURE [None]
  - SUBDURAL HAEMATOMA [None]
  - WEIGHT DECREASED [None]
